FAERS Safety Report 5458534-7 (Version None)
Quarter: 2007Q3

REPORT INFORMATION
  Report Type: 
  Country: None (occurrence: None)
  Receive Date: 20070919
  Receipt Date: 20070910
  Transmission Date: 20080115
  Serious: Yes (Life-Threatening, Hospitalization)
  Sender: FDA-Public Use
  Company Number: FR-AMGEN-US243374

PATIENT
  Sex: Female
  Weight: 80 kg

DRUGS (7)
  1. ENBREL [Suspect]
     Indication: POLYARTHRITIS
     Route: 058
     Dates: start: 20070419, end: 20070803
  2. METHOTREXATE [Suspect]
     Indication: POLYARTHRITIS
     Route: 048
     Dates: start: 19930615, end: 20061201
  3. METHOTREXATE [Suspect]
     Route: 048
     Dates: start: 20061201, end: 20070101
  4. METHOTREXATE [Suspect]
     Route: 048
     Dates: start: 20070101
  5. PRAVASTATIN [Concomitant]
     Indication: DYSLIPIDAEMIA
     Dosage: UNKNOWN
     Route: 048
     Dates: start: 19900101
  6. TRANDATE [Concomitant]
     Indication: HYPERTENSION
     Dosage: UNKNOWN
     Route: 048
     Dates: start: 19900101
  7. LOXEN [Concomitant]
     Indication: HYPERTENSION
     Dosage: UNKNOWN
     Route: 048
     Dates: start: 19900101

REACTIONS (5)
  - BACK PAIN [None]
  - BREAST CANCER METASTATIC [None]
  - FALL [None]
  - HIP FRACTURE [None]
  - MUSCULOSKELETAL PAIN [None]
